FAERS Safety Report 5135386-6 (Version None)
Quarter: 2006Q4

REPORT INFORMATION
  Report Type: 
  Country: None (occurrence: None)
  Receive Date: 20061026
  Receipt Date: 20060830
  Transmission Date: 20070319
  Serious: Yes (Hospitalization)
  Sender: FDA-Public Use
  Company Number: US-BRISTOL-MYERS SQUIBB COMPANY-13495478

PATIENT
  Age: 65 Year
  Sex: Male

DRUGS (8)
  1. ORENCIA [Suspect]
     Indication: RHEUMATOID ARTHRITIS
     Route: 042
     Dates: start: 20060501, end: 20060701
  2. PREDNISONE TAB [Concomitant]
  3. VICODIN [Concomitant]
  4. COUMADIN [Concomitant]
  5. FOSAMAX [Concomitant]
  6. METFORMIN HCL [Concomitant]
  7. PREVACID [Concomitant]
  8. TRICOR [Concomitant]

REACTIONS (1)
  - HISTOPLASMOSIS [None]
